FAERS Safety Report 15594790 (Version 1)
Quarter: 2018Q4

REPORT INFORMATION
  Report Type: Spontaneous
  Country: US (occurrence: US)
  Receive Date: 20181106
  Receipt Date: 20181106
  Transmission Date: 20190205
  Serious: No
  Sender: FDA-Public Use
  Company Number: US-SA-2018SA304315

PATIENT
  Sex: Female

DRUGS (1)
  1. CAMPATH [Suspect]
     Active Substance: ALEMTUZUMAB
     Indication: LYMPHOCYTIC LEUKAEMIA
     Dosage: 30 MG,3 TIMES A WEEK
     Route: 041

REACTIONS (1)
  - Urticaria [Unknown]
